FAERS Safety Report 6086233-X (Version None)
Quarter: 2009Q1

REPORT INFORMATION
  Report Type: 
  Country: None (occurrence: None)
  Receive Date: 20090220
  Receipt Date: 20090210
  Transmission Date: 20090719
  Serious: Yes (Hospitalization, Other)
  Sender: FDA-Public Use
  Company Number: PR-BAXTER-2009BH002582

PATIENT
  Sex: Female

DRUGS (1)
  1. HEPARIN SODIUM INJECTION [Suspect]
     Indication: DRUG USE FOR UNKNOWN INDICATION
     Route: 064
     Dates: start: 20071001, end: 20071201

REACTIONS (2)
  - DRUG EXPOSURE DURING PREGNANCY [None]
  - PNEUMOTHORAX [None]
